FAERS Safety Report 14688583 (Version 3)
Quarter: 2018Q2

REPORT INFORMATION
  Report Type: Spontaneous
  Country: US (occurrence: US)
  Receive Date: 20180328
  Receipt Date: 20180625
  Transmission Date: 20180711
  Serious: Yes (Other)
  Sender: FDA-Public Use
  Company Number: US-PFIZER INC-2018119868

PATIENT
  Age: 74 Year
  Sex: Female

DRUGS (2)
  1. VICODIN [Interacting]
     Active Substance: ACETAMINOPHEN\HYDROCODONE BITARTRATE
     Dosage: UNK
  2. TIKOSYN [Suspect]
     Active Substance: DOFETILIDE
     Dosage: 0.5 MG, 2X/DAY
     Dates: start: 20171215

REACTIONS (7)
  - Pruritus [Unknown]
  - Atrial fibrillation [Unknown]
  - Blood creatinine increased [Unknown]
  - Arrhythmia [Unknown]
  - Malaise [Unknown]
  - Drug interaction [Unknown]
  - Extrasystoles [Unknown]

NARRATIVE: CASE EVENT DATE: 20180527
